FAERS Safety Report 20174136 (Version 6)
Quarter: 2023Q1

REPORT INFORMATION
  Report Type: Report from Study
  Country: JP (occurrence: JP)
  Receive Date: 20211213
  Receipt Date: 20230215
  Transmission Date: 20230417
  Serious: Yes (Other)
  Sender: FDA-Public Use
  Company Number: JP-TAKEDA-2021TJP127341

PATIENT
  Age: 3 Year
  Sex: Male
  Weight: 11.2 kg

DRUGS (11)
  1. TEDUGLUTIDE [Suspect]
     Active Substance: TEDUGLUTIDE
     Indication: Short-bowel syndrome
     Dosage: 0.6 MILLIGRAM, QD
     Route: 058
     Dates: start: 20210913, end: 20211203
  2. TEDUGLUTIDE [Suspect]
     Active Substance: TEDUGLUTIDE
     Indication: Short-bowel syndrome
     Dosage: 0.6 MILLIGRAM, QD
     Route: 058
     Dates: start: 20210913, end: 20211203
  3. TEDUGLUTIDE [Suspect]
     Active Substance: TEDUGLUTIDE
     Indication: Short-bowel syndrome
     Dosage: 0.6 MILLIGRAM, QD
     Route: 058
     Dates: start: 20210913, end: 20211203
  4. TEDUGLUTIDE [Suspect]
     Active Substance: TEDUGLUTIDE
     Indication: Short-bowel syndrome
     Dosage: 0.6 MILLIGRAM, QD
     Route: 058
     Dates: start: 20210913, end: 20211203
  5. TEDUGLUTIDE [Suspect]
     Active Substance: TEDUGLUTIDE
     Dosage: 0.6 MILLIGRAM, QD
     Route: 058
     Dates: start: 20220111
  6. TEDUGLUTIDE [Suspect]
     Active Substance: TEDUGLUTIDE
     Dosage: 0.6 MILLIGRAM, QD
     Route: 058
     Dates: start: 20220111
  7. TEDUGLUTIDE [Suspect]
     Active Substance: TEDUGLUTIDE
     Dosage: 0.6 MILLIGRAM, QD
     Route: 058
     Dates: start: 20220111
  8. TEDUGLUTIDE [Suspect]
     Active Substance: TEDUGLUTIDE
     Dosage: 0.6 MILLIGRAM, QD
     Route: 058
     Dates: start: 20220111
  9. BIFIDOBACTERIUM SPP. [Concomitant]
     Active Substance: BIFIDOBACTERIUM SPP.
     Dosage: UNK
     Route: 065
  10. LEVOCARNITINE HYDROCHLORIDE [Concomitant]
     Active Substance: LEVOCARNITINE HYDROCHLORIDE
     Dosage: UNK
     Route: 065
  11. PULMICORT TURBUHALER [Concomitant]
     Active Substance: BUDESONIDE
     Dosage: UNK
     Route: 065

REACTIONS (4)
  - Ileus [Recovered/Resolved]
  - Hypoglycaemia [Recovered/Resolved]
  - Vomiting [Recovering/Resolving]
  - Abdominal distension [Recovering/Resolving]

NARRATIVE: CASE EVENT DATE: 20211204
